FAERS Safety Report 4757774-X (Version None)
Quarter: 2005Q3

REPORT INFORMATION
  Report Type: 
  Country: None (occurrence: None)
  Receive Date: 20050831
  Receipt Date: 20050825
  Transmission Date: 20060218
  Serious: Yes (Hospitalization)
  Sender: FDA-Public Use
  Company Number: US-BRISTOL-MYERS SQUIBB COMPANY-13089545

PATIENT
  Age: 72 Year
  Sex: Female
  Weight: 80 kg

DRUGS (3)
  1. CETUXIMAB [Suspect]
     Indication: COLON CANCER
     Dates: start: 20050817, end: 20050817
  2. IRINOTECAN [Suspect]
     Indication: COLON CANCER
     Route: 042
     Dates: start: 20050810, end: 20050810
  3. CAPECITABINE [Suspect]
     Indication: COLON CANCER
     Dosage: DAYS 1-14
     Route: 048
     Dates: start: 20050810, end: 20050817

REACTIONS (1)
  - INTESTINAL OBSTRUCTION [None]
